FAERS Safety Report 7458745-5 (Version None)
Quarter: 2011Q2

REPORT INFORMATION
  Report Type: 
  Country: None (occurrence: None)
  Receive Date: 20110504
  Receipt Date: 20110421
  Transmission Date: 20111010
  Serious: Yes (Hospitalization)
  Sender: FDA-Public Use
  Company Number: PHHY2011CH35651

PATIENT
  Age: 72 Year
  Sex: Male

DRUGS (5)
  1. BENSERAZIDE [Concomitant]
     Dosage: UNK UKN, UNK
  2. BUPROPION HCL [Interacting]
     Indication: DEPRESSION
     Dosage: 300 MG, UNK
  3. TRAZODONE HCL [Suspect]
     Indication: DEPRESSION
     Dosage: 300 MG, UNK
  4. LITHIUM CARBONATE [Interacting]
     Dosage: UNK UKN, UNK
  5. LEVODOPA [Concomitant]
     Dosage: UNK UKN, UNK

REACTIONS (10)
  - FLUCTUANCE [None]
  - THINKING ABNORMAL [None]
  - ATAXIA [None]
  - SUICIDE ATTEMPT [None]
  - NEUROTOXICITY [None]
  - DELUSION [None]
  - HALLUCINATION, VISUAL [None]
  - ENCEPHALOPATHY [None]
  - DRUG INTERACTION [None]
  - ELECTROCARDIOGRAM ABNORMAL [None]
